FAERS Safety Report 14909247 (Version 1)
Quarter: 2018Q2

REPORT INFORMATION
  Report Type: Spontaneous
  Country: US (occurrence: US)
  Receive Date: 20180430
  Receipt Date: 20180430
  Transmission Date: 20180711
  Serious: Yes (Other)
  Sender: FDA-Public Use
  Company Number: None

PATIENT
  Age: 59 Year
  Sex: Female

DRUGS (2)
  1. METFORMIN [Suspect]
     Active Substance: METFORMIN HYDROCHLORIDE
     Indication: TYPE 2 DIABETES MELLITUS
     Route: 048
  2. LISINOPRIL 5 MG [Concomitant]
     Active Substance: LISINOPRIL

REACTIONS (7)
  - Gastrointestinal pain [None]
  - Drug intolerance [None]
  - Diarrhoea [None]
  - Dyspepsia [None]
  - Intestinal polyp [None]
  - Inflammation [None]
  - Gastrointestinal disorder [None]
